FAERS Safety Report 8072431-2 (Version None)
Quarter: 2012Q1

REPORT INFORMATION
  Report Type: 
  Country: None (occurrence: None)
  Receive Date: 20120124
  Receipt Date: 20120124
  Transmission Date: 20120608
  Serious: No
  Sender: FDA-Public Use
  Company Number: None

PATIENT

DRUGS (2)
  1. REGULAR INSULIN [Suspect]
     Dosage: INJECTABLE IV PUSH 10 UNITS VIAL
     Route: 042
  2. INSULIN LISPRO [Suspect]
     Dosage: INJECTABLE IV PUSH 10 UNITS VIAL
     Route: 042

REACTIONS (3)
  - DRUG PRESCRIBING ERROR [None]
  - DRUG DISPENSING ERROR [None]
  - DRUG LABEL CONFUSION [None]
